FAERS Safety Report 6682043-0 (Version None)
Quarter: 2010Q2

REPORT INFORMATION
  Report Type: 
  Country: None (occurrence: None)
  Receive Date: 20100414
  Receipt Date: 20100407
  Transmission Date: 20101027
  Serious: Yes (Hospitalization, Other)
  Sender: FDA-Public Use
  Company Number: BR-ABBOTT-10P-020-0637051-00

PATIENT
  Sex: Female
  Weight: 55 kg

DRUGS (2)
  1. HUMIRA [Suspect]
     Indication: CROHN'S DISEASE
     Route: 058
  2. FEXOFENADINE HCL W/PSEUDOEPHEDRINE HCL [Concomitant]
     Indication: PAIN
     Route: 048

REACTIONS (5)
  - ANAEMIA [None]
  - CROHN'S DISEASE [None]
  - PAIN IN EXTREMITY [None]
  - PYREXIA [None]
  - WEIGHT DECREASED [None]
